FAERS Safety Report 15566745 (Version 1)
Quarter: 2018Q4

REPORT INFORMATION
  Report Type: Spontaneous
  Country: NL (occurrence: NL)
  Receive Date: 20181030
  Receipt Date: 20181030
  Transmission Date: 20190205
  Serious: Yes (Hospitalization)
  Sender: FDA-Public Use
  Company Number: NL-TERSERA THERAPEUTICS LLC-TSR2018002414

PATIENT

DRUGS (1)
  1. ZOLADEX [Suspect]
     Active Substance: GOSERELIN ACETATE
     Indication: PROSTATE CANCER
     Dosage: UNK, UNK
     Route: 058
     Dates: start: 201707

REACTIONS (2)
  - Acute myocardial infarction [Unknown]
  - Cardiac asthma [Unknown]

NARRATIVE: CASE EVENT DATE: 20180323
